FAERS Safety Report 19967949 (Version 1)
Quarter: 2021Q4

REPORT INFORMATION
  Report Type: Other
  Country: US (occurrence: US)
  Receive Date: 20211019
  Receipt Date: 20211019
  Transmission Date: 20220303
  Serious: Yes (Hospitalization)
  Sender: FDA-Public Use
  Company Number: US-ROCHE-2934306

PATIENT
  Age: 49 Year
  Sex: Female

DRUGS (1)
  1. DORNASE ALFA [Suspect]
     Active Substance: DORNASE ALFA
     Indication: Lung abscess
     Route: 034

REACTIONS (1)
  - Bronchopleural fistula [Recovered/Resolved]
